FAERS Safety Report 8419983-8 (Version None)
Quarter: 2012Q2

REPORT INFORMATION
  Report Type: 
  Country: None (occurrence: None)
  Receive Date: 20120323
  Receipt Date: 20110224
  Transmission Date: 20120825
  Serious: Yes (Hospitalization)
  Sender: FDA-Public Use
  Company Number: 163-21880-11022945

PATIENT
  Age: 63 Year
  Sex: Female
  Weight: 97.0698 kg

DRUGS (8)
  1. ACETAMINOPHEN [Concomitant]
  2. MIRALAX [Concomitant]
  3. FOLIC ACID [Concomitant]
  4. GABAPENTIN [Concomitant]
  5. TRAMADOL HCL [Concomitant]
  6. REVLIMID [Suspect]
     Indication: MULTIPLE MYELOMA
     Dosage: 10 MG, 1 IN 1 D, PO
     Route: 048
     Dates: start: 20110201
  7. CARVEDILOL [Concomitant]
  8. LISINOPRIL [Concomitant]

REACTIONS (1)
  - VIRAL INFECTION [None]
